FAERS Safety Report 23569478 (Version 6)
Quarter: 2024Q4

REPORT INFORMATION
  Report Type: Spontaneous
  Country: JP (occurrence: JP)
  Receive Date: 20240227
  Receipt Date: 20241203
  Transmission Date: 20250115
  Serious: Yes (Hospitalization, Other)
  Sender: ALEXION PHARMACEUTICALS
  Company Number: 2024A013134

PATIENT
  Age: 60 Year
  Weight: 50 kg

DRUGS (38)
  1. IMFINZI [Suspect]
     Active Substance: DURVALUMAB
     Indication: Non-small cell lung cancer
     Dosage: 490 MILLIGRAM, Q2W
  2. IMFINZI [Suspect]
     Active Substance: DURVALUMAB
     Dosage: 490 MILLIGRAM, Q2W
  3. IMFINZI [Suspect]
     Active Substance: DURVALUMAB
     Dosage: 490 MILLIGRAM, Q2W
  4. IMFINZI [Suspect]
     Active Substance: DURVALUMAB
     Dosage: 490 MILLIGRAM, Q2W
  5. IMFINZI [Suspect]
     Active Substance: DURVALUMAB
     Dosage: 1500 MILLIGRAM, UNK, FREQUENCY: UNK
  6. IMFINZI [Suspect]
     Active Substance: DURVALUMAB
     Dosage: 1500 MILLIGRAM, UNK, FREQUENCY: UNK
  7. IMFINZI [Suspect]
     Active Substance: DURVALUMAB
     Dosage: 1500 MILLIGRAM, UNK, FREQUENCY: UNK
  8. IMFINZI [Suspect]
     Active Substance: DURVALUMAB
     Dosage: 1500 MILLIGRAM, UNK, FREQUENCY: UNK
  9. IMJUDO [Suspect]
     Active Substance: TREMELIMUMAB\TREMELIMUMAB-ACTL
     Indication: Non-small cell lung cancer
     Dosage: 75 MILLIGRAM, UNK, FREQUENCY: Q4WK
  10. IMJUDO [Suspect]
     Active Substance: TREMELIMUMAB\TREMELIMUMAB-ACTL
     Dosage: 75 MILLIGRAM, UNK, FREQUENCY: Q4WK
  11. IMJUDO [Suspect]
     Active Substance: TREMELIMUMAB\TREMELIMUMAB-ACTL
     Dosage: 75 MILLIGRAM, UNK, FREQUENCY: Q4WK
  12. IMJUDO [Suspect]
     Active Substance: TREMELIMUMAB\TREMELIMUMAB-ACTL
     Dosage: 75 MILLIGRAM, UNK, FREQUENCY: Q4WK
  13. CARBOPLATIN [Concomitant]
     Active Substance: CARBOPLATIN
     Indication: Non-small cell lung cancer
     Dosage: ONCE EVERY 3-4 WEEKS
  14. CARBOPLATIN [Concomitant]
     Active Substance: CARBOPLATIN
     Dosage: ONCE EVERY 3-4 WEEKS
     Route: 065
  15. ABRAXANE [Concomitant]
     Active Substance: PACLITAXEL
     Indication: Non-small cell lung cancer
     Dosage: TWICE EVERY 3-4 WEEKS
  16. ABRAXANE [Concomitant]
     Active Substance: PACLITAXEL
     Dosage: TWICE EVERY 3-4 WEEKS
  17. ABRAXANE [Concomitant]
     Active Substance: PACLITAXEL
     Dosage: TWICE EVERY 3-4 WEEKS
     Route: 065
  18. URSO [Concomitant]
     Active Substance: URSODIOL
     Indication: Non-small cell lung cancer
     Dosage: DOSE UNKNOWN
  19. URSO [Concomitant]
     Active Substance: URSODIOL
     Dosage: DOSE UNKNOWN
  20. URSO [Concomitant]
     Active Substance: URSODIOL
     Dosage: DOSE UNKNOWN
     Route: 065
  21. SPIRIVA [Concomitant]
     Active Substance: TIOTROPIUM BROMIDE MONOHYDRATE
     Indication: Non-small cell lung cancer
     Dosage: DOSE UNKNOWN
  22. SPIRIVA [Concomitant]
     Active Substance: TIOTROPIUM BROMIDE MONOHYDRATE
     Dosage: DOSE UNKNOWN
  23. SPIRIVA [Concomitant]
     Active Substance: TIOTROPIUM BROMIDE MONOHYDRATE
     Dosage: DOSE UNKNOWN
     Route: 065
  24. VONOPRAZAN FUMARATE [Concomitant]
     Active Substance: VONOPRAZAN FUMARATE
     Indication: Non-small cell lung cancer
     Dosage: DOSE UNKNOWN
  25. VONOPRAZAN FUMARATE [Concomitant]
     Active Substance: VONOPRAZAN FUMARATE
     Indication: Gastrointestinal disorder
     Dosage: DOSE UNKNOWN
  26. VONOPRAZAN FUMARATE [Concomitant]
     Active Substance: VONOPRAZAN FUMARATE
  27. VONOPRAZAN FUMARATE [Concomitant]
     Active Substance: VONOPRAZAN FUMARATE
  28. TEPRENONE [Concomitant]
     Active Substance: TEPRENONE
     Indication: Non-small cell lung cancer
     Dosage: DOSE UNKNOWN
  29. TEPRENONE [Concomitant]
     Active Substance: TEPRENONE
     Dosage: DOSE UNKNOWN
  30. TEPRENONE [Concomitant]
     Active Substance: TEPRENONE
     Dosage: DOSE UNKNOWN
     Route: 065
  31. BIO-THREE [Concomitant]
     Active Substance: HERBALS
     Indication: Non-small cell lung cancer
     Dosage: DOSE UNKNOWN
  32. Astomin [Concomitant]
     Indication: Non-small cell lung cancer
     Dosage: DOSE UNKNOWN
  33. Astomin [Concomitant]
     Indication: Lung neoplasm malignant
     Dosage: DOSE UNKNOWN
  34. Astomin [Concomitant]
  35. Astomin [Concomitant]
  36. CARBOCYSTEINE [Concomitant]
     Active Substance: CARBOCYSTEINE
     Indication: Non-small cell lung cancer
     Dosage: DOSE UNKNOWN
  37. CARBOCYSTEINE [Concomitant]
     Active Substance: CARBOCYSTEINE
     Indication: Lung neoplasm malignant
  38. CARBOCYSTEINE [Concomitant]
     Active Substance: CARBOCYSTEINE

REACTIONS (2)
  - Aplasia pure red cell [Recovering/Resolving]
  - Immune thrombocytopenia [Recovering/Resolving]
